FAERS Safety Report 9272057 (Version 2)
Quarter: 2013Q2

REPORT INFORMATION
  Report Type: Spontaneous
  Country: US (occurrence: US)
  Receive Date: 20130506
  Receipt Date: 20130506
  Transmission Date: 20140414
  Serious: No
  Sender: FDA-Public Use
  Company Number: US-ASTRAZENECA-2012SE38610

PATIENT
  Age: 61 Year
  Sex: Female

DRUGS (2)
  1. SYMBICORT PMDI [Suspect]
     Route: 055
  2. ANXIETY MEDICATION [Suspect]
     Indication: ANXIETY
     Route: 065

REACTIONS (6)
  - Asthma [Unknown]
  - Malaise [Unknown]
  - Confusional state [Unknown]
  - Malaise [Unknown]
  - Anxiety [Unknown]
  - Drug dose omission [Unknown]
